FAERS Safety Report 12012341 (Version 1)
Quarter: 2016Q1

REPORT INFORMATION
  Report Type: Report from Study
  Country: ZW (occurrence: ZW)
  Receive Date: 20160205
  Receipt Date: 20160205
  Transmission Date: 20160526
  Serious: Yes (Other)
  Sender: FDA-Public Use
  Company Number: ZW-ABBVIE-16P-190-1551855-00

PATIENT
  Age: 32 Year
  Sex: Female

DRUGS (3)
  1. KALETRA [Suspect]
     Active Substance: LOPINAVIR\RITONAVIR
     Indication: HIV INFECTION
     Dosage: ONE COURSE, 4 TABS/CAPS
     Route: 048
     Dates: start: 20100907
  2. ABACAVIR. [Suspect]
     Active Substance: ABACAVIR
     Indication: HIV INFECTION
     Dosage: ONE COURSE,2 TAB/CAPS
     Route: 048
     Dates: start: 20100907
  3. VIDEX [Suspect]
     Active Substance: DIDANOSINE
     Indication: HIV INFECTION
     Dosage: ONE COURSE, 1 TAB/CAPS
     Route: 048
     Dates: start: 20100907

REACTIONS (3)
  - Foetal death [Unknown]
  - Abortion spontaneous [Recovered/Resolved]
  - Exposure during pregnancy [Unknown]

NARRATIVE: CASE EVENT DATE: 20100919
